FAERS Safety Report 8990820 (Version 1)
Quarter: 2012Q4

REPORT INFORMATION
  Report Type: 
  Country: US (occurrence: US)
  Receive Date: 20121231
  Receipt Date: 20121231
  Transmission Date: 20130627
  Serious: Yes (Death)
  Sender: FDA-Public Use
  Company Number: PHEH2012US025513

PATIENT
  Age: 57 Year
  Sex: Female

DRUGS (2)
  1. EXJADE [Suspect]
     Dosage: 2000 mg, daily
     Route: 048
  2. GABAPENTIN [Concomitant]

REACTIONS (1)
  - Death [Fatal]
